FAERS Safety Report 23632558 (Version 1)
Quarter: 2024Q1

REPORT INFORMATION
  Report Type: Report from Study
  Country: CA (occurrence: CA)
  Receive Date: 20240314
  Receipt Date: 20240314
  Transmission Date: 20240410
  Serious: Yes (Other)
  Sender: FDA-Public Use
  Company Number: CA-SA-SAC20220613000236

PATIENT
  Age: 6 Year
  Sex: Male

DRUGS (20)
  1. EFTRENONACOG ALFA [Suspect]
     Active Substance: EFTRENONACOG ALFA
     Indication: Factor IX deficiency
     Dosage: 1000 IU, QW
     Route: 042
     Dates: start: 20190514
  2. EFTRENONACOG ALFA [Suspect]
     Active Substance: EFTRENONACOG ALFA
     Indication: Factor IX deficiency
     Dosage: 1000 IU, QW
     Route: 042
     Dates: start: 20190514
  3. EFTRENONACOG ALFA [Suspect]
     Active Substance: EFTRENONACOG ALFA
     Dosage: 2000 IU, QW (WEDNESDAY)
     Route: 042
     Dates: start: 20190514
  4. EFTRENONACOG ALFA [Suspect]
     Active Substance: EFTRENONACOG ALFA
     Dosage: 2000 IU, QW (WEDNESDAY)
     Route: 042
     Dates: start: 20190514
  5. EFTRENONACOG ALFA [Suspect]
     Active Substance: EFTRENONACOG ALFA
     Dosage: 2000 IU, QW
     Route: 042
     Dates: start: 20190514
  6. EFTRENONACOG ALFA [Suspect]
     Active Substance: EFTRENONACOG ALFA
     Dosage: 2000 IU, QW
     Route: 042
     Dates: start: 20190514
  7. EFTRENONACOG ALFA [Suspect]
     Active Substance: EFTRENONACOG ALFA
     Dosage: 1000 IU
     Route: 042
     Dates: start: 20240112
  8. EFTRENONACOG ALFA [Suspect]
     Active Substance: EFTRENONACOG ALFA
     Dosage: 1000 IU
     Route: 042
     Dates: start: 20240112
  9. EFTRENONACOG ALFA [Suspect]
     Active Substance: EFTRENONACOG ALFA
     Dosage: 1000 IU
     Route: 042
     Dates: start: 20240115
  10. EFTRENONACOG ALFA [Suspect]
     Active Substance: EFTRENONACOG ALFA
     Dosage: 1000 IU
     Route: 042
     Dates: start: 20240115
  11. EFTRENONACOG ALFA [Suspect]
     Active Substance: EFTRENONACOG ALFA
     Dosage: 1000 IU
     Route: 042
     Dates: start: 20240119
  12. EFTRENONACOG ALFA [Suspect]
     Active Substance: EFTRENONACOG ALFA
     Dosage: 1000 IU
     Route: 042
     Dates: start: 20240119
  13. EFTRENONACOG ALFA [Suspect]
     Active Substance: EFTRENONACOG ALFA
     Dosage: 2000 IU, QW
     Route: 042
     Dates: start: 20240124
  14. EFTRENONACOG ALFA [Suspect]
     Active Substance: EFTRENONACOG ALFA
     Dosage: 2000 IU, QW
     Route: 042
     Dates: start: 20240124
  15. EFTRENONACOG ALFA [Suspect]
     Active Substance: EFTRENONACOG ALFA
     Dosage: 2000 IU, QW
     Route: 042
     Dates: start: 20240129
  16. EFTRENONACOG ALFA [Suspect]
     Active Substance: EFTRENONACOG ALFA
     Dosage: 2000 IU, QW
     Route: 042
     Dates: start: 20240129
  17. EFTRENONACOG ALFA [Suspect]
     Active Substance: EFTRENONACOG ALFA
     Dosage: 1000 IU
     Route: 042
     Dates: start: 20240131
  18. EFTRENONACOG ALFA [Suspect]
     Active Substance: EFTRENONACOG ALFA
     Dosage: 1000 IU
     Route: 042
     Dates: start: 20240131
  19. EFTRENONACOG ALFA [Suspect]
     Active Substance: EFTRENONACOG ALFA
     Dosage: 1000 IU
     Route: 042
     Dates: start: 20240202
  20. EFTRENONACOG ALFA [Suspect]
     Active Substance: EFTRENONACOG ALFA
     Dosage: 1000 IU
     Route: 042
     Dates: start: 20240202

REACTIONS (12)
  - Haemarthrosis [Recovered/Resolved]
  - Infusion site extravasation [Recovered/Resolved]
  - Infusion site haemorrhage [Recovered/Resolved]
  - Infusion site pain [Recovered/Resolved]
  - Arthralgia [Recovered/Resolved]
  - Joint swelling [Recovered/Resolved]
  - Joint range of motion decreased [Recovered/Resolved]
  - Peripheral swelling [Recovering/Resolving]
  - Soft tissue haemorrhage [Recovered/Resolved]
  - Soft tissue swelling [Not Recovered/Not Resolved]
  - Haemorrhage [Recovering/Resolving]
  - Drug resistance [Recovering/Resolving]

NARRATIVE: CASE EVENT DATE: 20231213
